FAERS Safety Report 7594818-4 (Version None)
Quarter: 2011Q3

REPORT INFORMATION
  Report Type: 
  Country: None (occurrence: None)
  Receive Date: 20110707
  Receipt Date: 20110624
  Transmission Date: 20111222
  Serious: Yes (Hospitalization)
  Sender: FDA-Public Use
  Company Number: NL-JNJFOC-20110603626

PATIENT
  Sex: Male
  Weight: 52.7 kg

DRUGS (8)
  1. REMICADE [Suspect]
     Route: 042
     Dates: start: 20110419
  2. ONDANSETRON [Concomitant]
  3. REMICADE [Suspect]
     Indication: CROHN'S DISEASE
     Route: 042
     Dates: start: 20110209
  4. CALCICHEW [Concomitant]
  5. LOPERAMIDE [Concomitant]
  6. FOLIUMZUUR [Concomitant]
  7. PANTOPRAZOLE [Concomitant]
  8. METHOTREXATE [Suspect]
     Indication: CROHN'S DISEASE

REACTIONS (1)
  - CROHN'S DISEASE [None]
